FAERS Safety Report 8233512-3 (Version None)
Quarter: 2012Q1

REPORT INFORMATION
  Report Type: 
  Country: None (occurrence: None)
  Receive Date: 20120326
  Receipt Date: 20120316
  Transmission Date: 20120608
  Serious: Yes (Other)
  Sender: FDA-Public Use
  Company Number: US-US-EMD SERONO, INC.-7119883

PATIENT
  Sex: Female
  Weight: 82 kg

DRUGS (8)
  1. REBIF [Suspect]
     Indication: MULTIPLE SCLEROSIS
     Route: 058
     Dates: start: 20050902
  2. ORTHO RING [Concomitant]
     Indication: CONTRACEPTION
     Route: 067
  3. TOPAMAX [Concomitant]
     Indication: MIGRAINE
  4. DEPO-PROVERA [Concomitant]
     Indication: CONTRACEPTION
  5. BIRTH CONTROL PILLS [Concomitant]
     Indication: CONTRACEPTION
  6. INTRAUTERINE DEVICE [Concomitant]
     Indication: CONTRACEPTION
  7. PATCH [Concomitant]
     Indication: CONTRACEPTION
     Route: 062
  8. AMBIEN [Concomitant]
     Indication: FIBROMYALGIA

REACTIONS (4)
  - MENINGIOMA [None]
  - INJECTION SITE ERYTHEMA [None]
  - INJECTION SITE URTICARIA [None]
  - INJECTION SITE PRURITUS [None]
